FAERS Safety Report 5263940-X (Version None)
Quarter: 2007Q1

REPORT INFORMATION
  Report Type: 
  Country: None (occurrence: None)
  Receive Date: 20070313
  Receipt Date: 20070302
  Transmission Date: 20070707
  Serious: Yes (Other)
  Sender: FDA-Public Use
  Company Number: US-JNJFOC-20070301180

PATIENT
  Sex: Female
  Weight: 89.36 kg

DRUGS (13)
  1. REMICADE [Suspect]
     Indication: PSORIATIC ARTHROPATHY
  2. TOPROL-XL [Concomitant]
  3. POTASSIUM CHLORIDE [Concomitant]
  4. LEVOXYL [Concomitant]
  5. PLAVIX [Concomitant]
  6. MIACALCIN [Concomitant]
  7. VITAMIN B-12 [Concomitant]
     Route: 030
  8. CENTRUM SILVER [Concomitant]
     Dosage: TWICE DAILY
  9. TYLENOL [Concomitant]
     Dosage: BEDTIME
  10. CHEWABLE CALCIUM [Concomitant]
     Dosage: TWICE DAILY
  11. ULTRAM [Concomitant]
     Dosage: AS NEEDED
  12. LASIX [Concomitant]
  13. NITROGLYCERIN [Concomitant]
     Dosage: AS NEEDED

REACTIONS (2)
  - ANTINUCLEAR ANTIBODY POSITIVE [None]
  - CARDIOLIPIN ANTIBODY POSITIVE [None]
